FAERS Safety Report 15928722 (Version 1)
Quarter: 2019Q1

REPORT INFORMATION
  Report Type: Report from Study
  Country: None (occurrence: BR)
  Receive Date: 20190206
  Receipt Date: 20190206
  Transmission Date: 20190417
  Serious: Yes (Other)
  Sender: FDA-Public Use
  Company Number: BR-ABBVIE-19K-020-2649815-00

PATIENT
  Age: 51 Year
  Sex: Female
  Weight: 59 kg

DRUGS (5)
  1. HUMIRA [Suspect]
     Active Substance: ADALIMUMAB
     Route: 058
     Dates: start: 2018, end: 2018
  2. HUMIRA [Suspect]
     Active Substance: ADALIMUMAB
     Dosage: WEEK 2 LOADING DOSE
     Route: 058
     Dates: start: 2018, end: 2018
  3. HUMIRA [Suspect]
     Active Substance: ADALIMUMAB
     Route: 058
  4. HUMIRA [Suspect]
     Active Substance: ADALIMUMAB
     Route: 058
     Dates: start: 20190124
  5. HUMIRA [Suspect]
     Active Substance: ADALIMUMAB
     Indication: CROHN^S DISEASE
     Dosage: WEEK 0 LOADING DOSE
     Route: 058
     Dates: start: 20180322, end: 20180322

REACTIONS (13)
  - Immunodeficiency [Recovering/Resolving]
  - Injection site erythema [Recovering/Resolving]
  - Hypovitaminosis [Unknown]
  - Gastric mucosal lesion [Unknown]
  - Menopause [Unknown]
  - Jaw fracture [Recovered/Resolved]
  - Osteopenia [Recovered/Resolved]
  - Cytomegalovirus infection [Recovering/Resolving]
  - Injection site pain [Recovering/Resolving]
  - Neck mass [Recovering/Resolving]
  - Gastrointestinal pain [Unknown]
  - Lip pain [Recovered/Resolved]
  - Lip swelling [Recovered/Resolved]

NARRATIVE: CASE EVENT DATE: 201808
